FAERS Safety Report 12790618 (Version 1)
Quarter: 2016Q3

REPORT INFORMATION
  Report Type: Spontaneous
  Country: US (occurrence: US)
  Receive Date: 20160929
  Receipt Date: 20160929
  Transmission Date: 20161109
  Serious: No
  Sender: FDA-Public Use
  Company Number: US-TEVA-677204USA

PATIENT
  Sex: Female
  Weight: 70.37 kg

DRUGS (1)
  1. TRI-LO SPRINTEC [Suspect]
     Active Substance: ETHINYL ESTRADIOL\NORGESTIMATE
     Indication: ENDOMETRIOSIS
     Dosage: 0.18/0.25 MG; 0.215/0.035 MG; 0.250/
     Dates: start: 2016, end: 2016

REACTIONS (5)
  - Product substitution issue [Unknown]
  - Reaction to drug excipients [Unknown]
  - Abdominal pain upper [Unknown]
  - Diarrhoea [Unknown]
  - Malaise [Unknown]

NARRATIVE: CASE EVENT DATE: 2016
